FAERS Safety Report 22131999 (Version 1)
Quarter: 2023Q1

REPORT INFORMATION
  Report Type: Spontaneous
  Country: US (occurrence: None)
  Receive Date: 20230323
  Receipt Date: 20230323
  Transmission Date: 20230418
  Serious: Yes (Hospitalization, Other)
  Sender: FDA-Public Use
  Company Number: 2023A063211

PATIENT
  Age: 57 Year
  Sex: Female
  Weight: 101.2 kg

DRUGS (3)
  1. PULMICORT FLEXHALER [Suspect]
     Active Substance: BUDESONIDE
     Indication: Asthma
     Dosage: THREE PUFFS TWICE A DAY
     Route: 055
     Dates: start: 2002
  2. PULMICORT FLEXHALER [Suspect]
     Active Substance: BUDESONIDE
     Indication: Asthma
     Dosage: TWO PUFFS TWICE A DAY
     Route: 055
     Dates: start: 2002
  3. PULMICORT FLEXHALER [Suspect]
     Active Substance: BUDESONIDE
     Indication: Asthma
     Dosage: ONE PUFF TWICE A DAY
     Route: 055
     Dates: start: 2002

REACTIONS (17)
  - Post procedural sepsis [Unknown]
  - Post procedural complication [Not Recovered/Not Resolved]
  - Obstruction [Unknown]
  - Gastric ileus [Unknown]
  - Uterine enlargement [Unknown]
  - Vaginal abscess [Unknown]
  - Haematoma [Unknown]
  - Diarrhoea [Unknown]
  - Vomiting [Unknown]
  - Chills [Unknown]
  - Pyrexia [Unknown]
  - Hypotension [Unknown]
  - Hypertension [Recovering/Resolving]
  - Anaemia [Unknown]
  - Infection [Unknown]
  - Walking aid user [Recovering/Resolving]
  - Cancer pain [Recovering/Resolving]

NARRATIVE: CASE EVENT DATE: 20100101
